FAERS Safety Report 12631799 (Version 3)
Quarter: 2016Q3

REPORT INFORMATION
  Report Type: Spontaneous
  Country: US (occurrence: US)
  Receive Date: 20160808
  Receipt Date: 20160822
  Transmission Date: 20161109
  Serious: No
  Sender: FDA-Public Use
  Company Number: US-BEH-2016061066

PATIENT
  Age: 37 Year
  Sex: Female
  Weight: 52.16 kg

DRUGS (14)
  1. BACTROBAN [Concomitant]
     Active Substance: MUPIROCIN\MUPIROCIN CALCIUM
  2. ALEVE [Concomitant]
     Active Substance: NAPROXEN SODIUM
  3. AZITHROMYCIN ANHYDROUS. [Concomitant]
     Active Substance: AZITHROMYCIN ANHYDROUS
  4. LMX [Concomitant]
     Active Substance: LIDOCAINE
  5. VITAMIN C [Concomitant]
     Active Substance: ASCORBIC ACID
  6. ONDASETRON [Concomitant]
     Active Substance: ONDANSETRON
  7. HIZENTRA [Suspect]
     Active Substance: HUMAN IMMUNOGLOBULIN G
     Indication: IMMUNODEFICIENCY COMMON VARIABLE
     Dosage: 8 G, QW
     Route: 058
     Dates: start: 201504
  8. EPIPEN [Concomitant]
     Active Substance: EPINEPHRINE
  9. CLARITIN [Concomitant]
     Active Substance: LORATADINE
  10. VITAMIN D [Concomitant]
     Active Substance: CHOLECALCIFEROL
  11. MULTIVITAL [Concomitant]
  12. FERROUS SULFATE. [Concomitant]
     Active Substance: FERROUS SULFATE
  13. PROBIOTIC [Concomitant]
     Active Substance: PROBIOTICS NOS
  14. ACETAMINOPHEN. [Concomitant]
     Active Substance: ACETAMINOPHEN

REACTIONS (1)
  - Pyrexia [Recovered/Resolved]

NARRATIVE: CASE EVENT DATE: 20160327
